FAERS Safety Report 19908103 (Version 12)
Quarter: 2023Q1

REPORT INFORMATION
  Report Type: Spontaneous
  Country: CA (occurrence: CA)
  Receive Date: 20211002
  Receipt Date: 20230331
  Transmission Date: 20230418
  Serious: Yes (Hospitalization, Other)
  Sender: FDA-Public Use
  Company Number: CA-CELLTRION INC.-2021CA007376

PATIENT

DRUGS (17)
  1. INFLECTRA [Suspect]
     Active Substance: INFLIXIMAB-DYYB
     Indication: Colitis ulcerative
     Dosage: 300 MG, 0, 2, 6 THEN EVERY 8 WEEKS
     Route: 041
     Dates: start: 20210504, end: 20221123
  2. INFLECTRA [Suspect]
     Active Substance: INFLIXIMAB-DYYB
     Dosage: 300 MG, 0, 2, 6 THEN EVERY 8 WEEKS
     Route: 042
     Dates: start: 20210504, end: 20230114
  3. INFLECTRA [Suspect]
     Active Substance: INFLIXIMAB-DYYB
     Dosage: 300 MG, 0, 2, 6 THEN EVERY 8 WEEKS
     Route: 041
     Dates: start: 20210511
  4. INFLECTRA [Suspect]
     Active Substance: INFLIXIMAB-DYYB
     Dosage: 300 MG, 0, 2, 6 THEN EVERY 8 WEEKS
     Route: 041
     Dates: start: 20220520
  5. INFLECTRA [Suspect]
     Active Substance: INFLIXIMAB-DYYB
     Dosage: 300 MG, 0, 2, 6 THEN EVERY 8 WEEKS
     Route: 041
     Dates: start: 20220709
  6. INFLECTRA [Suspect]
     Active Substance: INFLIXIMAB-DYYB
     Dosage: 300 MG, 0, 2, 6 THEN EVERY 8 WEEKS
     Route: 042
     Dates: start: 20220920
  7. INFLECTRA [Suspect]
     Active Substance: INFLIXIMAB-DYYB
     Dosage: 300 MG, 0, 2, 6 THEN EVERY 8 WEEKS
     Route: 042
     Dates: start: 20221123
  8. INFLECTRA [Suspect]
     Active Substance: INFLIXIMAB-DYYB
     Dosage: 300 MG, EVERY 6 WEEK
     Route: 042
     Dates: start: 20221207
  9. INFLECTRA [Suspect]
     Active Substance: INFLIXIMAB-DYYB
     Dosage: 300 MG, EVERY 6 WEEK
     Route: 042
     Dates: start: 20230114
  10. INFLECTRA [Suspect]
     Active Substance: INFLIXIMAB-DYYB
     Dosage: 300 MG, RESCUE DOSES 16FEB2023 AND 21FEB2023, THEN EVERY 6 WEEKS
     Route: 042
     Dates: start: 20230216
  11. INFLECTRA [Suspect]
     Active Substance: INFLIXIMAB-DYYB
     Dosage: 300 MG, RESCUE DOSES, THEN EVERY 6 WEEKS
     Route: 042
     Dates: start: 20230222
  12. INFLECTRA [Suspect]
     Active Substance: INFLIXIMAB-DYYB
     Dosage: 300 MG, EVERY 4 WEEKS
     Route: 042
     Dates: start: 20230322
  13. AZATHIOPRINE [Concomitant]
     Active Substance: AZATHIOPRINE
     Dosage: 50 MG, DAILY
  14. MESALAMINE [Concomitant]
     Active Substance: MESALAMINE
     Dosage: 2.4 MG, DAILY
  15. PREDNISONE [Concomitant]
     Active Substance: PREDNISONE
     Dosage: 40 MG, (FOR 2 WEEKS AND THEN TAPER), TAPERING DOSE
     Route: 065
  16. PREDNISONE [Concomitant]
     Active Substance: PREDNISONE
     Dosage: 25 MG
     Route: 065
  17. VANCOMYCIN [Concomitant]
     Active Substance: VANCOMYCIN
     Indication: Clostridium difficile infection
     Dosage: 1 DF, DOSAGE INFORMATION NOT AVAILABLE - STARTED DURING HOSPITALIZATION
     Route: 042
     Dates: start: 202105

REACTIONS (9)
  - Clostridium difficile infection [Unknown]
  - Condition aggravated [Recovered/Resolved]
  - Inappropriate schedule of product administration [Unknown]
  - Off label use [Unknown]
  - Gait disturbance [Unknown]
  - Arthralgia [Not Recovered/Not Resolved]
  - Condition aggravated [Recovered/Resolved]
  - Product administration interrupted [Recovered/Resolved]
  - Product use issue [Unknown]

NARRATIVE: CASE EVENT DATE: 20210501
